FAERS Safety Report 6582481-0 (Version None)
Quarter: 2010Q1

REPORT INFORMATION
  Report Type: 
  Country: None (occurrence: None)
  Receive Date: 20100216
  Receipt Date: 20100209
  Transmission Date: 20100710
  Serious: Yes (Hospitalization)
  Sender: FDA-Public Use
  Company Number: PHHO2010KR02194

PATIENT
  Sex: Male
  Weight: 55 kg

DRUGS (3)
  1. ZOLEDRONATE T29581+ [Suspect]
     Indication: MULTIPLE MYELOMA
     Dosage: 4 MG
     Route: 042
     Dates: start: 20090316, end: 20100108
  2. VITAMIN D [Concomitant]
  3. CALCIUM [Concomitant]

REACTIONS (3)
  - BONE OPERATION [None]
  - OSTEONECROSIS [None]
  - SEQUESTRECTOMY [None]
